FAERS Safety Report 20712475 (Version 1)
Quarter: 2022Q2

REPORT INFORMATION
  Report Type: Spontaneous
  Country: GB (occurrence: GB)
  Receive Date: 20220415
  Receipt Date: 20220415
  Transmission Date: 20220720
  Serious: Yes (Disabling)
  Sender: FDA-Public Use
  Company Number: GB-MHRA-TPP26745456C8633997YC1648728978183

PATIENT
  Age: 54 Year
  Sex: Female
  Weight: 61 kg

DRUGS (7)
  1. CODEINE [Suspect]
     Active Substance: CODEINE
     Indication: Back pain
     Dosage: 30 MILLIGRAM, UNK
     Route: 065
  2. CETRABEN EMOLLIENT CREAM [Concomitant]
     Indication: Ill-defined disorder
     Dosage: APPLY TO FACE AND USE AS SOAP SUBSTITUTE.
     Route: 065
     Dates: start: 20220310, end: 20220324
  3. MINERAL OIL\PARAFFIN [Concomitant]
     Active Substance: MINERAL OIL\PARAFFIN
     Indication: Ill-defined disorder
     Dosage: APPLY TWICE DAILY OR AS REQUIRED
     Route: 065
     Dates: start: 20220216
  4. CHOLECALCIFEROL [Concomitant]
     Active Substance: CHOLECALCIFEROL
     Indication: Ill-defined disorder
     Dosage: AS DIRECTED
     Route: 065
     Dates: start: 20200619
  5. HYDROCORTISONE [Concomitant]
     Active Substance: HYDROCORTISONE
     Indication: Ill-defined disorder
     Dosage: APPLY TWICE DAILY ON AFFECTED SKIN THIN APPLICATION NOT TO EXCEED 7 DAYS
     Route: 065
     Dates: start: 20220310, end: 20220317
  6. IBUPROFEN [Concomitant]
     Active Substance: IBUPROFEN
     Indication: Ill-defined disorder
     Dosage: APPLY 3 TIMES/DAY FROPAIN IF NEEDED
     Route: 065
     Dates: start: 20220211, end: 20220221
  7. LEVOTHYROXINE [Concomitant]
     Active Substance: LEVOTHYROXINE
     Indication: Ill-defined disorder
     Dosage: TAKE ONE DAILY (TOTAL DOSAGE 75MCG/100MCG ALT D...
     Route: 065
     Dates: start: 20190205

REACTIONS (4)
  - Loss of consciousness [Unknown]
  - Hypotension [Recovered/Resolved]
  - Nausea [Recovered/Resolved]
  - Malaise [Unknown]
